FAERS Safety Report 6371594-4 (Version None)
Quarter: 2009Q3

REPORT INFORMATION
  Report Type: 
  Country: None (occurrence: None)
  Receive Date: 20090923
  Receipt Date: 20071008
  Transmission Date: 20100115
  Serious: No
  Sender: FDA-Public Use
  Company Number: US-ASTRAZENECA-2007UW24996

PATIENT
  Age: 478 Month
  Sex: Male
  Weight: 108.9 kg

DRUGS (7)
  1. SEROQUEL [Suspect]
     Indication: BIPOLAR I DISORDER
     Dosage: 100-200 MG
     Route: 048
     Dates: start: 20030127
  2. SEROQUEL [Suspect]
     Indication: INSOMNIA
     Dosage: 100-200 MG
     Route: 048
     Dates: start: 20030127
  3. SEROQUEL [Suspect]
     Indication: HALLUCINATION
     Dosage: 100-200 MG
     Route: 048
     Dates: start: 20030127
  4. PAXIL CR [Concomitant]
     Dosage: 12.5-150 MG
     Dates: start: 20030127
  5. WELLBUTRIN [Concomitant]
     Dosage: 100-150 MG
     Dates: start: 20030919
  6. ELAVIL [Concomitant]
     Dosage: 25-100 MG
     Dates: start: 20040213
  7. CADUET [Concomitant]
     Dosage: 5, 10 MG EVERYDAY
     Route: 048
     Dates: start: 20050418

REACTIONS (11)
  - BACK PAIN [None]
  - CHEST PAIN [None]
  - DIABETES MELLITUS [None]
  - DIZZINESS [None]
  - DYSPNOEA [None]
  - ERECTILE DYSFUNCTION [None]
  - HYPERLIPIDAEMIA [None]
  - HYPERTENSION [None]
  - MUSCULOSKELETAL PAIN [None]
  - TYPE 2 DIABETES MELLITUS [None]
  - WEIGHT INCREASED [None]
